FAERS Safety Report 13452786 (Version 2)
Quarter: 2017Q3

REPORT INFORMATION
  Report Type: Spontaneous
  Country: JP (occurrence: JP)
  Receive Date: 20170418
  Receipt Date: 20170922
  Transmission Date: 20171127
  Serious: Yes (Other)
  Sender: FDA-Public Use
  Company Number: JP-TEVA-759470ROM

PATIENT
  Age: 81 Year
  Sex: Female

DRUGS (1)
  1. BENET [Suspect]
     Active Substance: RISEDRONATE SODIUM
     Indication: OSTEOPOROSIS
     Route: 048
     Dates: start: 2011

REACTIONS (5)
  - Fall [Unknown]
  - Pseudarthrosis [Unknown]
  - Osteoarthritis [Unknown]
  - Contusion [Unknown]
  - Ulna fracture [Unknown]

NARRATIVE: CASE EVENT DATE: 201405
